FAERS Safety Report 13135410 (Version 1)
Quarter: 2017Q1

REPORT INFORMATION
  Report Type: Spontaneous
  Country: IE (occurrence: IE)
  Receive Date: 20170120
  Receipt Date: 20170120
  Transmission Date: 20170428
  Serious: Yes (Death)
  Sender: FDA-Public Use
  Company Number: IE-LHC-2017013

PATIENT
  Age: 78 Year
  Sex: Male

DRUGS (1)
  1. MEDICAL OXYGEN [Suspect]
     Active Substance: OXYGEN
     Indication: CHRONIC OBSTRUCTIVE PULMONARY DISEASE
     Route: 007

REACTIONS (1)
  - Accident [Fatal]

NARRATIVE: CASE EVENT DATE: 20160922
